FAERS Safety Report 24972998 (Version 2)
Quarter: 2025Q4

REPORT INFORMATION
  Report Type: Report from Study
  Country: EU (occurrence: EU)
  Receive Date: 20250215
  Receipt Date: 20251003
  Transmission Date: 20260118
  Serious: No
  Sender: SANDOZ
  Company Number: EU-SANDOZ-SDZ2025GR008809

PATIENT
  Age: 9 Year
  Sex: Male

DRUGS (2)
  1. OMNITROPE [Suspect]
     Active Substance: SOMATROPIN
     Indication: Growth hormone deficiency
     Dosage: 10 ML
     Route: 058
     Dates: start: 20161026
  2. OMNITROPE [Suspect]
     Active Substance: SOMATROPIN
     Indication: Noonan syndrome
     Dosage: 5 MG, QW
     Route: 058
     Dates: start: 20161026

REACTIONS (4)
  - Product use in unapproved indication [Unknown]
  - Device use issue [Unknown]
  - Device defective [Unknown]
  - Device delivery system issue [Unknown]

NARRATIVE: CASE EVENT DATE: 20250501
